FAERS Safety Report 14746947 (Version 2)
Quarter: 2018Q2

REPORT INFORMATION
  Report Type: Report from Study
  Country: IL (occurrence: IL)
  Receive Date: 20180411
  Receipt Date: 20180430
  Transmission Date: 20180711
  Serious: Yes (Hospitalization, Other)
  Sender: FDA-Public Use
  Company Number: IL-JNJFOC-20170706150

PATIENT
  Sex: Female

DRUGS (6)
  1. VENOFER [Concomitant]
     Active Substance: IRON SUCROSE
     Route: 042
  2. SIMPONI [Suspect]
     Active Substance: GOLIMUMAB
     Indication: COLITIS ULCERATIVE
     Route: 058
     Dates: start: 20150802
  3. CYMBALTA [Concomitant]
     Active Substance: DULOXETINE HYDROCHLORIDE
     Route: 065
  4. SALAZOPYRINE [Suspect]
     Active Substance: SULFASALAZINE
     Indication: PRODUCT USED FOR UNKNOWN INDICATION
     Route: 065
  5. MODAL [Concomitant]
     Route: 065
  6. TRAZODIL [Concomitant]
     Route: 065

REACTIONS (7)
  - Mental disorder [Unknown]
  - Hepatitis C [Unknown]
  - Suicidal ideation [Unknown]
  - Renal failure [Unknown]
  - Drug dose omission [Unknown]
  - Internal haemorrhage [Unknown]
  - Eye operation [Unknown]
